FAERS Safety Report 4848723-4 (Version None)
Quarter: 2005Q4

REPORT INFORMATION
  Report Type: 
  Country: None (occurrence: None)
  Receive Date: 20051206
  Receipt Date: 20051124
  Transmission Date: 20060501
  Serious: Yes (Hospitalization)
  Sender: FDA-Public Use
  Company Number: DE_051117392

PATIENT
  Age: 61 Year
  Sex: Male

DRUGS (7)
  1. ALIMTA [Suspect]
     Indication: PLEURAL MESOTHELIOMA
     Dosage: 500 MG/M2, INTRAVENOUS
     Route: 042
     Dates: start: 20050101, end: 20051026
  2. DEXAMETHASONE (DEXAMEHTASONE SODIUM PHOSPHATE) [Concomitant]
  3. LAFOL (FOLIC ACID) [Concomitant]
  4. VITAMIN B12 [Concomitant]
  5. NEXIUM [Concomitant]
  6. OXYGEN (OXYGEN) [Concomitant]
  7. CONTRAST MEDIA [Concomitant]

REACTIONS (17)
  - ANIMAL BITE [None]
  - BLISTER [None]
  - DISEASE RECURRENCE [None]
  - EMBOLISM [None]
  - HYPOXIA [None]
  - MALIGNANT NEOPLASM PROGRESSION [None]
  - MICROANGIOPATHY [None]
  - NEUROPATHY [None]
  - OEDEMA PERIPHERAL [None]
  - PAIN IN EXTREMITY [None]
  - PERIPHERAL ARTERIAL OCCLUSIVE DISEASE [None]
  - PLEURAL EFFUSION [None]
  - SCLERODERMA [None]
  - SENSORY DISTURBANCE [None]
  - SKIN DISCOLOURATION [None]
  - SKIN HYPERTROPHY [None]
  - TRANSAMINASES INCREASED [None]
